FAERS Safety Report 8369294-4 (Version None)
Quarter: 2012Q2

REPORT INFORMATION
  Report Type: 
  Country: None (occurrence: None)
  Receive Date: 20120518
  Receipt Date: 20120511
  Transmission Date: 20120825
  Serious: Yes (Hospitalization, Other)
  Sender: FDA-Public Use
  Company Number: PHFR2012GB002906

PATIENT
  Sex: Female

DRUGS (2)
  1. ZONISAMIDE [Concomitant]
     Dosage: 400 MG AT NIGHT
  2. TEGRETOL [Suspect]
     Dosage: 800 MG, BID

REACTIONS (2)
  - LEUKOPENIA [None]
  - CONVULSION [None]
